FAERS Safety Report 24178473 (Version 2)
Quarter: 2024Q3

REPORT INFORMATION
  Report Type: Spontaneous
  Country: CA (occurrence: CA)
  Receive Date: 20240806
  Receipt Date: 20240823
  Transmission Date: 20241016
  Serious: Yes (Other)
  Sender: BRISTOL MYERS SQUIBB
  Company Number: CA-BRISTOL-MYERS SQUIBB COMPANY-2024-122646

PATIENT
  Sex: Male

DRUGS (3)
  1. ORENCIA [Suspect]
     Active Substance: ABATACEPT
     Indication: Rheumatoid arthritis
  2. UPADACITINIB [Concomitant]
     Active Substance: UPADACITINIB
     Indication: Rheumatoid arthritis
  3. METHOTREXATE SODIUM [Concomitant]
     Active Substance: METHOTREXATE SODIUM
     Indication: Rheumatoid arthritis

REACTIONS (3)
  - Kaposi^s sarcoma [Recovered/Resolved]
  - Treatment failure [Unknown]
  - Rebound effect [Recovered/Resolved]
